FAERS Safety Report 22341521 (Version 1)
Quarter: 2023Q2

REPORT INFORMATION
  Report Type: Spontaneous
  Country: US (occurrence: US)
  Receive Date: 20230518
  Receipt Date: 20230518
  Transmission Date: 20230721
  Serious: No
  Sender: FDA-Public Use
  Company Number: US-GALDERMA-US2023007040

PATIENT

DRUGS (5)
  1. PROACTIV MD ADAPALENE ACNE TREATMENT [Suspect]
     Active Substance: ADAPALENE
     Indication: Acne
     Dosage: 1 DOSAGE FORM, QD
     Route: 061
     Dates: start: 20230430, end: 20230503
  2. Proactiv MD Ultra Gentle Cleanser [Concomitant]
     Indication: Acne
     Dosage: 1 DOSAGE FORM, BID
     Route: 061
     Dates: start: 20230430, end: 20230503
  3. Proactiv MD Ultra Hydrating Moisturizer [Concomitant]
     Indication: Acne
     Dosage: 1 DOSAGE FORM, BID
     Route: 061
     Dates: start: 20230430, end: 20230503
  4. PROACTIV ACNE BODY WASH [Concomitant]
     Active Substance: SALICYLIC ACID
     Indication: Acne
     Dosage: 1 DOSAGE FORM, BID
     Route: 061
     Dates: start: 20230430, end: 20230503
  5. VITAMIN D NOS [Concomitant]
     Active Substance: VITAMIN D NOS
     Indication: Product used for unknown indication

REACTIONS (7)
  - Skin burning sensation [Not Recovered/Not Resolved]
  - Skin discolouration [Not Recovered/Not Resolved]
  - Blister [Not Recovered/Not Resolved]
  - Erythema [Not Recovered/Not Resolved]
  - Pruritus [Not Recovered/Not Resolved]
  - Dermatitis [Not Recovered/Not Resolved]
  - Skin exfoliation [Not Recovered/Not Resolved]

NARRATIVE: CASE EVENT DATE: 20230430
